FAERS Safety Report 18595751 (Version 1)
Quarter: 2020Q4

REPORT INFORMATION
  Report Type: Report from Study
  Country: US (occurrence: US)
  Receive Date: 20201209
  Receipt Date: 20201209
  Transmission Date: 20210114
  Serious: Yes (Hospitalization)
  Sender: FDA-Public Use
  Company Number: US-EISAI MEDICAL RESEARCH-EC-2020-084948

PATIENT
  Age: 77 Year
  Sex: Female

DRUGS (1)
  1. LENVIMA [Suspect]
     Active Substance: LENVATINIB
     Indication: RENAL CANCER
     Route: 048
     Dates: start: 20201008, end: 20201126

REACTIONS (4)
  - Anal ulcer [Unknown]
  - Proctalgia [Unknown]
  - Malignant neoplasm progression [Unknown]
  - Intestinal perforation [Unknown]

NARRATIVE: CASE EVENT DATE: 202011
